FAERS Safety Report 5269634-9 (Version None)
Quarter: 2007Q1

REPORT INFORMATION
  Report Type: 
  Country: None (occurrence: None)
  Receive Date: 20070320
  Receipt Date: 20070316
  Transmission Date: 20070707
  Serious: Yes (Other)
  Sender: FDA-Public Use
  Company Number: US-BRISTOL-MYERS SQUIBB COMPANY-13666102

PATIENT
  Age: 38 Year
  Sex: Female

DRUGS (8)
  1. CYTOXAN [Suspect]
     Indication: BREAST CANCER
     Dates: start: 20060914, end: 20061228
  2. TAXOTERE [Suspect]
     Indication: BREAST CANCER
     Dates: start: 20060914, end: 20061228
  3. ADRIAMYCIN PFS [Suspect]
     Indication: BREAST CANCER
     Dates: start: 20060914, end: 20061228
  4. VITAMINS [Concomitant]
  5. ASMANEX TWISTHALER [Concomitant]
  6. ASTELIN [Concomitant]
  7. ALAVERT [Concomitant]
  8. LOPERAMIDE HCL [Concomitant]

REACTIONS (3)
  - NEUROPATHY PERIPHERAL [None]
  - NEUTROPENIA [None]
  - OPTIC ISCHAEMIC NEUROPATHY [None]
